FAERS Safety Report 6067952-8 (Version None)
Quarter: 2009Q1

REPORT INFORMATION
  Report Type: 
  Country: None (occurrence: None)
  Receive Date: 20090206
  Receipt Date: 20090127
  Transmission Date: 20090719
  Serious: No
  Sender: FDA-Public Use
  Company Number: US-JNJFOC-20090201074

PATIENT
  Sex: Male
  Weight: 77.11 kg

DRUGS (5)
  1. FENTANYL TRANSDERMAL SYSTEM [Suspect]
     Indication: PAIN
     Dosage: 100UG/HR 2 PATCHES
     Route: 062
  2. OXYCODONE HCL [Concomitant]
     Indication: BREAKTHROUGH PAIN
     Dosage: TWO TABLETS 3TIMES A DAY
     Route: 048
  3. ALPRAZOLAM [Concomitant]
     Indication: ANXIETY
     Route: 048
  4. ALPRAZOLAM [Concomitant]
     Indication: SLEEP DISORDER
     Dosage: ONE TABLET 4TIMES IN 2DAYS
     Route: 048
  5. DIAZEPAM [Concomitant]
     Indication: MUSCLE SPASMS
     Dosage: 10MG TABLET ONE THREE TIMES A DAY
     Route: 048

REACTIONS (2)
  - DRUG INEFFECTIVE [None]
  - INAPPROPRIATE SCHEDULE OF DRUG ADMINISTRATION [None]
